FAERS Safety Report 8147956-1 (Version None)
Quarter: 2012Q1

REPORT INFORMATION
  Report Type: 
  Country: None (occurrence: None)
  Receive Date: 20120218
  Receipt Date: 20110404
  Transmission Date: 20120608
  Serious: No
  Sender: FDA-Public Use
  Company Number: US-ALLERGAN-1104664US

PATIENT
  Sex: Female

DRUGS (1)
  1. BOTULINUM TOXIN TYPE A [Suspect]
     Indication: DYSPEPSIA
     Dosage: UNK
     Route: 030
     Dates: start: 20100401, end: 20100501

REACTIONS (4)
  - RETCHING [None]
  - COUGH [None]
  - THROAT TIGHTNESS [None]
  - WEIGHT DECREASED [None]
